FAERS Safety Report 20766814 (Version 1)
Quarter: 2022Q2

REPORT INFORMATION
  Report Type: Spontaneous
  Country: DE (occurrence: DE)
  Receive Date: 20220429
  Receipt Date: 20220429
  Transmission Date: 20220721
  Serious: Yes (Hospitalization, Other)
  Sender: FDA-Public Use
  Company Number: DE-SA-2017SA226992

PATIENT
  Sex: Female

DRUGS (36)
  1. QUETIAPINE FUMARATE [Suspect]
     Active Substance: QUETIAPINE FUMARATE
     Indication: Bipolar disorder
     Dosage: 50 - 200 MG DAILY, THERAPY START DATE AND END DATE: ASKU
  2. QUETIAPINE FUMARATE [Suspect]
     Active Substance: QUETIAPINE FUMARATE
     Dosage: THERAPY START DATE AND END DATE: ASKU
  3. QUETIAPINE FUMARATE [Suspect]
     Active Substance: QUETIAPINE FUMARATE
     Dosage: 200 MG, THERAPY START DATE AND END DATE: ASKU
  4. QUETIAPINE FUMARATE [Suspect]
     Active Substance: QUETIAPINE FUMARATE
     Dosage: 50-100 MG, DAILY, THERAPY END DATE: ASKU, FREQUENCY TIME- 1 DAY
     Route: 048
     Dates: start: 201310
  5. QUETIAPINE FUMARATE [Suspect]
     Active Substance: QUETIAPINE FUMARATE
     Dosage: 50-0-0-100MG, THERAPY START DATE AND END DATE: ASKU
  6. QUETIAPINE FUMARATE [Suspect]
     Active Substance: QUETIAPINE FUMARATE
     Dosage: THERAPY START DATE AND END DATE: ASKU
  7. VALPROATE SODIUM [Suspect]
     Active Substance: VALPROATE SODIUM
     Indication: Bipolar disorder
     Dosage: 1800 MILLIGRAM DAILY; 1800 MG, QD, THERAPY END DATE: ASKU
     Route: 048
     Dates: start: 201310
  8. VALPROATE SODIUM [Suspect]
     Active Substance: VALPROATE SODIUM
     Dosage: 300 0 0 1000 MG, THERAPY START DATE AND END DATE: ASKU
  9. VALPROATE SODIUM [Suspect]
     Active Substance: VALPROATE SODIUM
     Dosage: QD, THERAPY START DATE AND END DATE: ASKU
     Route: 048
  10. VALPROATE SODIUM [Suspect]
     Active Substance: VALPROATE SODIUM
     Dosage: 1000- 0 -0 - 1300, THERAPY END DATE: ASKU
     Dates: start: 20140221
  11. VALPROATE SODIUM [Suspect]
     Active Substance: VALPROATE SODIUM
     Dosage: 2000 MILLIGRAM DAILY; 2000 MG, QD, DURATION-19 DAYS
     Dates: start: 20140627, end: 20140715
  12. VALPROATE SODIUM [Suspect]
     Active Substance: VALPROATE SODIUM
     Indication: Bipolar disorder
     Dosage: THERAPY START DATE AND END DATE: ASKU
     Route: 048
  13. VALPROATE SODIUM [Suspect]
     Active Substance: VALPROATE SODIUM
     Dosage: 1800 MILLIGRAM DAILY; 1800 MG, QD, THERAPY END DATE: ASKU
     Route: 065
     Dates: start: 201310
  14. VALPROATE SODIUM [Suspect]
     Active Substance: VALPROATE SODIUM
     Dosage: 2300 MILLIGRAM DAILY; 2300 MG, QD, DURATION-143 DAYS
     Route: 065
     Dates: start: 20140222, end: 20140714
  15. VALPROATE SODIUM [Suspect]
     Active Substance: VALPROATE SODIUM
     Dosage: 1300- 2500 MG DAILY, THERAPY START DATE AND END DATE: ASKU
     Route: 048
  16. VALPROATE SODIUM [Suspect]
     Active Substance: VALPROATE SODIUM
     Dosage: 1000 - 0 - 1000, DURATION-5 DAYS
     Dates: start: 20140520, end: 20140524
  17. VALPROATE SODIUM [Suspect]
     Active Substance: VALPROATE SODIUM
     Dosage: THERAPY START DATE AND END DATE: ASKU
     Route: 048
  18. LITHIUM [Suspect]
     Active Substance: LITHIUM
     Indication: Bipolar disorder
     Dosage: THERAPY START DATE AND END DATE: ASKU
  19. LITHIUM [Suspect]
     Active Substance: LITHIUM
     Dosage: 900- 2250 MG DAILY, THERAPY START DATE AND END DATE: ASKU, FREQUENCY TIME- 1 DAY,
     Route: 048
  20. LITHIUM [Suspect]
     Active Substance: LITHIUM
     Dosage: THERAPY START DATE AND END DATE: ASKU
  21. LITHIUM [Suspect]
     Active Substance: LITHIUM
     Dosage: LOW DOSE, THERAPY START DATE AND END DATE: ASKU
  22. LITHIUM [Suspect]
     Active Substance: LITHIUM
     Dosage: 450- 0 -0 -675 MG, THERAPY START DATE AND END DATE: ASKU
  23. VALPROIC ACID [Suspect]
     Active Substance: VALPROIC ACID
     Indication: Bipolar disorder
     Dosage: QD, THERAPY START DATE AND END DATE: ASKU
     Route: 048
  24. VALPROIC ACID [Suspect]
     Active Substance: VALPROIC ACID
     Dosage: 2300 MILLIGRAM DAILY; 2300 MG, QD, DURATION-78 DAYS
     Dates: start: 20131206, end: 20140221
  25. VALPROIC ACID [Suspect]
     Active Substance: VALPROIC ACID
     Dosage: 2300 MG, FREQUENCY TIME- 1 DAY, DURATION-11 DAYS
     Dates: start: 20140715, end: 20140725
  26. INSULIN HUMAN [Concomitant]
     Active Substance: INSULIN HUMAN
     Indication: Gestational diabetes
     Dosage: 6 IU (INTERNATIONAL UNIT) DAILY; 6 IU, QD, THERAPY END DATE: ASKU
     Route: 058
     Dates: start: 2014
  27. NOVORAPID [Concomitant]
     Active Substance: INSULIN ASPART
     Indication: Gestational diabetes
     Dosage: 5.5 IU, THROUGHOUT THE DAY, THERAPY END DATE: ASKU
     Route: 058
     Dates: start: 2014
  28. LEVOTHYROXINE SODIUM [Concomitant]
     Active Substance: LEVOTHYROXINE SODIUM
     Dosage: 75 MICROGRAM DAILY; 75 UG, QD, THERAPY START DATE AND END DATE: ASKU
     Route: 065
  29. PANTOPRAZOLE [Concomitant]
     Active Substance: PANTOPRAZOLE
     Dosage: 40 MILLIGRAM DAILY; 40 MG, QD, THERAPY START DATE AND END DATE: ASKU
  30. ARIPIPRAZOLE [Concomitant]
     Active Substance: ARIPIPRAZOLE
     Dosage: 5 MILLIGRAM DAILY; 5 MG, QD, THERAPY START DATE AND END DATE: ASKU
  31. MIRTAZAPINE [Concomitant]
     Active Substance: MIRTAZAPINE
     Dosage: 30 MILLIGRAM DAILY; 30 MG, QD, THERAPY START DATE AND END DATE: ASKU
  32. MIRTAZAPINE [Concomitant]
     Active Substance: MIRTAZAPINE
     Dosage: 0-0-0-15MG
  33. CITALOPRAM [Concomitant]
     Active Substance: CITALOPRAM HYDROBROMIDE
     Dosage: 20 MILLIGRAM DAILY; 20 MG, QD, THERAPY START DATE AND END DATE: ASKU
  34. AMLODIPINE [Concomitant]
     Active Substance: AMLODIPINE BESYLATE
     Dosage: 2 MILLIGRAM DAILY; 1-0-0-1 MG, THERAPY START DATE AND END DATE: ASKU
  35. AMLODIPINE [Concomitant]
     Active Substance: AMLODIPINE BESYLATE
     Dosage: 5 MILLIGRAM DAILY; 5 MG, QD
  36. LAMOTRIGINE [Concomitant]
     Active Substance: LAMOTRIGINE
     Dosage: 100 MILLIGRAM DAILY; 100 MG, QD, THERAPY START DATE AND END DATE: ASKU

REACTIONS (29)
  - Bipolar I disorder [Unknown]
  - Polyhydramnios [Unknown]
  - Hypertension [Unknown]
  - Bipolar I disorder [Unknown]
  - Bipolar disorder [Unknown]
  - Exposure during pregnancy [Unknown]
  - Gestational diabetes [Unknown]
  - Hypothyroidism [Unknown]
  - Frequent bowel movements [Recovered/Resolved]
  - Obesity [Unknown]
  - Mania [Unknown]
  - Blood glucose increased [Unknown]
  - Abdominal pain [Recovered/Resolved]
  - Adverse drug reaction [Unknown]
  - Sedation [Unknown]
  - Tremor [Unknown]
  - Weight increased [Unknown]
  - Abdominal distension [Recovered/Resolved]
  - Weight increased [Unknown]
  - Sedation [Unknown]
  - Abdominal distension [Unknown]
  - Constipation [Unknown]
  - Blood glucose fluctuation [Unknown]
  - Sciatica [Unknown]
  - Gastric disorder [Unknown]
  - Diarrhoea [Unknown]
  - Tremor [Unknown]
  - Blood glucose increased [Unknown]
  - Abdominal pain [Recovered/Resolved]

NARRATIVE: CASE EVENT DATE: 20130101
